FAERS Safety Report 4451144-X (Version None)
Quarter: 2004Q3

REPORT INFORMATION
  Report Type: 
  Country: None (occurrence: None)
  Receive Date: 20040913
  Receipt Date: 20040609
  Transmission Date: 20050211
  Serious: No
  Sender: FDA-Public Use
  Company Number: 2004-BP-04537BP (0)

PATIENT
  Age: 81 Year
  Sex: Male

DRUGS (8)
  1. SPIRIVA [Suspect]
     Indication: CHRONIC OBSTRUCTIVE AIRWAYS DISEASE
     Dosage: 19 MCG (18 MCG, ONCE DAILY), IH
     Route: 055
     Dates: start: 20040605
  2. SINGULAIR (MONTELUKAS SODIUM) [Concomitant]
  3. IPRATROPIUM/ALBUTEROL NEBULIZER [Concomitant]
  4. CALCIUM [Concomitant]
  5. VITAMIN E [Concomitant]
  6. CENTRUM SILVER (CENTRUM SILVER) [Concomitant]
  7. FOSAMAX [Concomitant]
  8. SEREVENT [Concomitant]

REACTIONS (1)
  - DYSPNOEA EXERTIONAL [None]
